FAERS Safety Report 5755786-0 (Version None)
Quarter: 2008Q2

REPORT INFORMATION
  Report Type: 
  Country: None (occurrence: None)
  Receive Date: 20080602
  Receipt Date: 20080521
  Transmission Date: 20081010
  Serious: Yes (Hospitalization, Other)
  Sender: FDA-Public Use
  Company Number: PHHY2008JP01450

PATIENT
  Sex: Female
  Weight: 60 kg

DRUGS (3)
  1. AREDIA [Suspect]
     Indication: METASTASES TO BONE
     Route: 042
     Dates: start: 20000101
  2. VINORELBINE [Concomitant]
     Indication: METASTASES TO BONE
     Dates: start: 20000101
  3. NAVELBINE [Concomitant]
     Dosage: UNK
     Dates: start: 20000101

REACTIONS (4)
  - BONE DISORDER [None]
  - GINGIVAL SWELLING [None]
  - ORAL DISCHARGE [None]
  - OSTEOMYELITIS [None]
